FAERS Safety Report 5018982-6 (Version None)
Quarter: 2006Q2

REPORT INFORMATION
  Report Type: 
  Country: None (occurrence: None)
  Receive Date: 20060606
  Receipt Date: 20060510
  Transmission Date: 20061013
  Serious: Yes (Hospitalization, Other)
  Sender: FDA-Public Use
  Company Number: US-GLAXOSMITHKLINE-A0605054A

PATIENT
  Age: 83 Year
  Sex: Male
  Weight: 68.6 kg

DRUGS (7)
  1. REQUIP [Suspect]
     Indication: PARKINSON'S DISEASE
     Dosage: .25MG THREE TIMES PER DAY
     Route: 048
  2. HYDROCHLOROTHIAZIDE [Concomitant]
     Dosage: 12.5MG PER DAY
     Route: 048
  3. PLAVIX [Concomitant]
     Dosage: 75MG PER DAY
     Route: 048
  4. ACIPHEX [Concomitant]
     Dosage: 20MG TWICE PER DAY
     Route: 048
  5. ZESTRIL [Concomitant]
     Dosage: 5MG PER DAY
     Route: 048
  6. ZOCOR [Concomitant]
     Dosage: 20MG PER DAY
     Route: 048
  7. CARBIDOPA AND LEVODOPA [Concomitant]
     Dosage: 1TAB THREE TIMES PER DAY
     Route: 048

REACTIONS (8)
  - ABDOMINAL PAIN [None]
  - ABDOMINAL PAIN UPPER [None]
  - BLOOD ALBUMIN DECREASED [None]
  - CHOLECYSTITIS [None]
  - CHOLELITHIASIS [None]
  - HEPATIC ENZYME INCREASED [None]
  - JAUNDICE CHOLESTATIC [None]
  - PANCREATITIS [None]
